FAERS Safety Report 10194782 (Version 1)
Quarter: 2014Q2

REPORT INFORMATION
  Report Type: Spontaneous
  Country: CN (occurrence: CN)
  Receive Date: 20140526
  Receipt Date: 20140526
  Transmission Date: 20141212
  Serious: Yes (Hospitalization, Other)
  Sender: FDA-Public Use
  Company Number: CN-009507513-1405CHN009574

PATIENT
  Age: 21 Year
  Sex: Male
  Weight: 50 kg

DRUGS (3)
  1. IMIPENEM (+) CILASTATIN SODIUM [Suspect]
     Indication: ANTI-INFECTIVE THERAPY
     Dosage: 1G, 1 TIME/8H, IV
     Route: 042
     Dates: start: 201312, end: 20131225
  2. VANCOMYCIN HYDROCHLORIDE [Concomitant]
     Indication: ANTI-INFECTIVE THERAPY
     Dosage: 500MG, 1TIME/8H, IV
     Route: 042
     Dates: start: 201312
  3. LINEZOLID [Concomitant]
     Indication: ANTI-INFECTIVE THERAPY
     Dosage: 600MG, 2 TIMES/DAY, NASAL FEEDING
     Route: 045
     Dates: start: 201312

REACTIONS (1)
  - Epilepsy [Recovered/Resolved]
